FAERS Safety Report 7406894-X (Version None)
Quarter: 2011Q2

REPORT INFORMATION
  Report Type: 
  Country: None (occurrence: None)
  Receive Date: 20110406
  Receipt Date: 20110406
  Transmission Date: 20111010
  Serious: Yes (Disabling, Other)
  Sender: FDA-Public Use
  Company Number: None

PATIENT
  Age: 63 Year
  Sex: Female
  Weight: 80.7403 kg

DRUGS (2)
  1. PRAVASTATIN [Suspect]
     Indication: HYPERLIPIDAEMIA
     Dosage: 1 TAB BEDTIME DAILY
     Dates: start: 20110124, end: 20110218
  2. SIMVASTATIN [Suspect]
     Indication: HYPERLIPIDAEMIA
     Dosage: 1 TAB DAILY
     Dates: start: 20090101

REACTIONS (6)
  - ASTHENIA [None]
  - ABASIA [None]
  - MUSCLE INJURY [None]
  - PAIN [None]
  - APHAGIA [None]
  - INSOMNIA [None]
